FAERS Safety Report 21620391 (Version 2)
Quarter: 2022Q4

REPORT INFORMATION
  Report Type: Spontaneous
  Country: US (occurrence: None)
  Receive Date: 20221121
  Receipt Date: 20221128
  Transmission Date: 20230113
  Serious: Yes (Other)
  Sender: FDA-Public Use
  Company Number: US-ROCHE-3219847

PATIENT

DRUGS (2)
  1. GAVRETO [Suspect]
     Active Substance: PRALSETINIB
     Indication: Non-small cell lung cancer
     Route: 048
     Dates: start: 20210419
  2. VEMLIDY [Suspect]
     Active Substance: TENOFOVIR ALAFENAMIDE FUMARATE
     Indication: Non-small cell lung cancer
     Route: 065

REACTIONS (4)
  - Decreased immune responsiveness [Unknown]
  - Hepatitis B [Unknown]
  - Pneumonitis [Unknown]
  - Hepatic enzyme increased [Unknown]
